FAERS Safety Report 24935731 (Version 1)
Quarter: 2025Q1

REPORT INFORMATION
  Report Type: Report from Study
  Country: US (occurrence: US)
  Receive Date: 20250206
  Receipt Date: 20250206
  Transmission Date: 20250409
  Serious: Yes (Hospitalization, Other)
  Sender: EXELIXIS
  Company Number: US-EXELIXIS-CABO-24080504

PATIENT
  Sex: Female

DRUGS (17)
  1. CABOMETYX [Suspect]
     Active Substance: CABOZANTINIB S-MALATE
     Indication: Malignant connective tissue neoplasm
     Dates: start: 20240720
  2. CABOMETYX [Suspect]
     Active Substance: CABOZANTINIB S-MALATE
     Indication: Soft tissue sarcoma
     Dosage: 40 MG, QD
     Dates: start: 20240803
  3. BUMETANIDE [Concomitant]
     Active Substance: BUMETANIDE
  4. METOPROLOL TARTRATE [Concomitant]
     Active Substance: METOPROLOL TARTRATE
  5. POTASSIUM CHLORIDE [Concomitant]
     Active Substance: POTASSIUM CHLORIDE
  6. ATORVASTATIN [Concomitant]
     Active Substance: ATORVASTATIN
  7. VITAMIN D3 [Concomitant]
     Active Substance: CHOLECALCIFEROL
  8. LEVOTHYROXINE [Concomitant]
     Active Substance: LEVOTHYROXINE
  9. SPIRONOLACTONE [Concomitant]
     Active Substance: SPIRONOLACTONE
  10. LOSARTAN [Concomitant]
     Active Substance: LOSARTAN
  11. METOLAZONE [Concomitant]
     Active Substance: METOLAZONE
  12. GLIPIZIDE [Concomitant]
     Active Substance: GLIPIZIDE
  13. TRAMADOL [Concomitant]
     Active Substance: TRAMADOL
  14. OXYGEN [Concomitant]
     Active Substance: OXYGEN
  15. ELIQUIS [Concomitant]
     Active Substance: APIXABAN
  16. ASPIRIN [Concomitant]
     Active Substance: ASPIRIN
  17. MORPHINE [Concomitant]
     Active Substance: MORPHINE

REACTIONS (19)
  - Pulmonary embolism [Not Recovered/Not Resolved]
  - Blood potassium decreased [Recovered/Resolved]
  - Haemorrhage [Unknown]
  - Heart valve incompetence [Not Recovered/Not Resolved]
  - Blood pressure decreased [Not Recovered/Not Resolved]
  - Loss of consciousness [Not Recovered/Not Resolved]
  - Dizziness [Not Recovered/Not Resolved]
  - Dyspnoea [Not Recovered/Not Resolved]
  - Stomatitis [Not Recovered/Not Resolved]
  - Oral pain [Not Recovered/Not Resolved]
  - Pruritus [Recovering/Resolving]
  - Abdominal discomfort [Recovering/Resolving]
  - Ageusia [Not Recovered/Not Resolved]
  - Blood glucose decreased [Not Recovered/Not Resolved]
  - Dandruff [Unknown]
  - Pain of skin [Recovering/Resolving]
  - Skin irritation [Recovering/Resolving]
  - Hospice care [Unknown]
  - Off label use [Unknown]
